FAERS Safety Report 11188832 (Version 3)
Quarter: 2015Q3

REPORT INFORMATION
  Report Type: Spontaneous
  Country: CN (occurrence: CN)
  Receive Date: 20150615
  Receipt Date: 20150907
  Transmission Date: 20151125
  Serious: Yes (Death, Life-Threatening)
  Sender: FDA-Public Use
  Company Number: CN-ROCHE-1594141

PATIENT
  Age: 82 Year
  Sex: Male

DRUGS (8)
  1. THYMOSIN [Concomitant]
     Active Substance: THYMOSIN
  2. LANSOPRAZOLE. [Concomitant]
     Active Substance: LANSOPRAZOLE
  3. AMBROXOL HYDROCHLORIDE [Concomitant]
     Active Substance: AMBROXOL HYDROCHLORIDE
     Route: 065
  4. AVASTIN [Suspect]
     Active Substance: BEVACIZUMAB
     Indication: COLON CANCER METASTATIC
     Route: 041
     Dates: start: 20150528, end: 20150528
  5. LIPOFUNDIN [Concomitant]
     Active Substance: EGG PHOSPHOLIPIDS\GLYCERIN\SOYBEAN OIL
     Route: 042
  6. AMINO ACID [Concomitant]
  7. CINOBUFOTALIN (UNK INGREDIENTS) [Concomitant]
     Route: 065
  8. OCTREOTIDE. [Concomitant]
     Active Substance: OCTREOTIDE

REACTIONS (5)
  - Depressed mood [Unknown]
  - Palpitations [Unknown]
  - Multi-organ failure [Fatal]
  - Blood pressure decreased [Not Recovered/Not Resolved]
  - Loss of consciousness [Not Recovered/Not Resolved]

NARRATIVE: CASE EVENT DATE: 20150605
